FAERS Safety Report 18599243 (Version 1)
Quarter: 2020Q4

REPORT INFORMATION
  Report Type: Spontaneous
  Country: BR (occurrence: BR)
  Receive Date: 20201210
  Receipt Date: 20201210
  Transmission Date: 20210114
  Serious: Yes (Other)
  Sender: FDA-Public Use
  Company Number: NVSC2020BR325370

PATIENT
  Sex: Female

DRUGS (3)
  1. LIORESAL [Suspect]
     Active Substance: BACLOFEN
     Indication: PRODUCT USED FOR UNKNOWN INDICATION
     Dosage: 10 MG (10MG 20 TABLETS)
     Route: 065
     Dates: start: 2005
  2. TEGRETOL XR [Suspect]
     Active Substance: CARBAMAZEPINE
     Indication: PRODUCT USED FOR UNKNOWN INDICATION
     Dosage: 200 MG
     Route: 065
     Dates: start: 2005
  3. AKINETON [Suspect]
     Active Substance: BIPERIDEN HYDROCHLORIDE

REACTIONS (6)
  - Wrong technique in product usage process [Recovering/Resolving]
  - Seizure [Unknown]
  - Movement disorder [Unknown]
  - Speech disorder [Unknown]
  - Cognitive disorder [Unknown]
  - Meningitis viral [Unknown]
